FAERS Safety Report 9050692 (Version 1)
Quarter: 2013Q1

REPORT INFORMATION
  Report Type: Spontaneous
  Country: US (occurrence: US)
  Receive Date: 20130205
  Receipt Date: 20130205
  Transmission Date: 20140127
  Serious: No
  Sender: FDA-Public Use
  Company Number: US-009507513-1302USA001589

PATIENT
  Age: 4 Year
  Sex: Male

DRUGS (3)
  1. CLARITIN CHEWABLE TABLETS [Suspect]
     Indication: SEASONAL ALLERGY
     Dosage: UNK, QD
     Route: 048
  2. CLARITIN CHEWABLE TABLETS [Suspect]
     Dosage: 5 MG, BID
     Route: 048
  3. PREDNISONE [Concomitant]
     Indication: PRODUCT USED FOR UNKNOWN INDICATION
     Dosage: UNK, UNKNOWN

REACTIONS (1)
  - Overdose [Recovering/Resolving]
